FAERS Safety Report 9689797 (Version 4)
Quarter: 2020Q4

REPORT INFORMATION
  Report Type: Report from Study
  Country: CA (occurrence: CA)
  Receive Date: 20131115
  Receipt Date: 20201127
  Transmission Date: 20210114
  Serious: Yes (Other)
  Sender: FDA-Public Use
  Company Number: CA-AMGEN-CANSP2013079888

PATIENT
  Age: 80 Year
  Sex: Female

DRUGS (1)
  1. PROLIA [Suspect]
     Active Substance: DENOSUMAB
     Indication: OSTEOPOROSIS POSTMENOPAUSAL
     Dosage: 60 MG, Q6MO
     Route: 058
     Dates: start: 20120322

REACTIONS (10)
  - Dry skin [Unknown]
  - Drug hypersensitivity [Unknown]
  - Blood urine present [Unknown]
  - Blood iron decreased [Unknown]
  - Nephrolithiasis [Unknown]
  - Actinic keratosis [Unknown]
  - Urinary tract infection [Unknown]
  - Facial pain [Unknown]
  - Fatigue [Recovered/Resolved]
  - Rosacea [Unknown]

NARRATIVE: CASE EVENT DATE: 2012
